FAERS Safety Report 8391725-4 (Version None)
Quarter: 2012Q2

REPORT INFORMATION
  Report Type: 
  Country: None (occurrence: None)
  Receive Date: 20120529
  Receipt Date: 20120525
  Transmission Date: 20120825
  Serious: Yes (Hospitalization, Other)
  Sender: FDA-Public Use
  Company Number: US-BAYER-2012-052301

PATIENT
  Age: 35 Year
  Sex: Female

DRUGS (3)
  1. MIRENA [Suspect]
     Indication: CONTRACEPTION
     Dosage: 20 MCG/24HR, UNK
     Route: 015
     Dates: start: 20101201, end: 20110201
  2. MIRENA [Suspect]
     Indication: OVARIAN CYST
  3. LEVAQUIN [Concomitant]
     Dosage: UNK
     Dates: start: 20110201

REACTIONS (7)
  - PANIC ATTACK [None]
  - HYPOAESTHESIA [None]
  - POST PROCEDURAL HAEMORRHAGE [None]
  - DEVICE DISLOCATION [None]
  - APRAXIA [None]
  - MENTAL DISORDER [None]
  - PERIPHERAL SENSORY NEUROPATHY [None]
